FAERS Safety Report 13920018 (Version 1)
Quarter: 2017Q3

REPORT INFORMATION
  Report Type: Spontaneous
  Country: NZ (occurrence: NZ)
  Receive Date: 20170829
  Receipt Date: 20170829
  Transmission Date: 20171127
  Serious: Yes (Other)
  Sender: FDA-Public Use
  Company Number: None

PATIENT
  Age: 65 Year
  Sex: Female
  Weight: 58 kg

DRUGS (1)
  1. BREO ELLIPTA [Suspect]
     Active Substance: FLUTICASONE FUROATE\VILANTEROL TRIFENATATE
     Indication: ASTHMA
     Route: 055

REACTIONS (18)
  - Rhinorrhoea [None]
  - Headache [None]
  - Sinusitis [None]
  - Cough [None]
  - Nausea [None]
  - Oropharyngeal pain [None]
  - Neck pain [None]
  - Insomnia [None]
  - Mouth ulceration [None]
  - Dysphonia [None]
  - Heart rate irregular [None]
  - Upper respiratory tract infection [None]
  - Bronchitis [None]
  - Palpitations [None]
  - Productive cough [None]
  - Influenza [None]
  - Rash [None]
  - Chest pain [None]
